FAERS Safety Report 13120647 (Version 1)
Quarter: 2017Q1

REPORT INFORMATION
  Report Type: Report from Study
  Country: BR (occurrence: BR)
  Receive Date: 20170117
  Receipt Date: 20170117
  Transmission Date: 20170428
  Serious: Yes (Hospitalization, Other)
  Sender: FDA-Public Use
  Company Number: BR-ALEXION-A201405093

PATIENT
  Sex: Female

DRUGS (1)
  1. SOLIRIS [Suspect]
     Active Substance: ECULIZUMAB
     Indication: HAEMOLYTIC URAEMIC SYNDROME
     Dosage: 1200 MG, UNK
     Route: 042
     Dates: start: 20140510, end: 20140801

REACTIONS (5)
  - Drug ineffective [Unknown]
  - Cardiac failure [Unknown]
  - Pulmonary oedema [Not Recovered/Not Resolved]
  - Pulmonary vasculitis [Unknown]
  - Sepsis [Unknown]
